APPROVED DRUG PRODUCT: MEGESTROL ACETATE
Active Ingredient: MEGESTROL ACETATE
Strength: 40MG/ML
Dosage Form/Route: SUSPENSION;ORAL
Application: A075681 | Product #001
Applicant: TEVA PHARMACEUTICALS USA
Approved: May 5, 2003 | RLD: No | RS: No | Type: DISCN